FAERS Safety Report 6962864-7 (Version None)
Quarter: 2010Q3

REPORT INFORMATION
  Report Type: 
  Country: None (occurrence: None)
  Receive Date: 20100902
  Receipt Date: 20100814
  Transmission Date: 20110219
  Serious: No
  Sender: FDA-Public Use
  Company Number: US-PFIZER INC-2010102939

PATIENT
  Sex: Female
  Weight: 77.098 kg

DRUGS (6)
  1. DETROL [Suspect]
     Indication: BLADDER DISORDER
     Dosage: UNK
     Route: 048
     Dates: start: 20080101, end: 20100601
  2. OXYBUTYNIN [Suspect]
     Indication: BLADDER DISORDER
     Dosage: 5 MG, DAILY
     Route: 048
     Dates: start: 20100701
  3. VERAPAMIL [Concomitant]
     Indication: HYPERTENSION
     Dosage: 120 MG, DAILY
     Route: 048
  4. LOSARTAN POTASSIUM [Concomitant]
     Indication: HYPERTENSION
     Dosage: 100 MG, DAILY
     Route: 048
  5. SPIRONOLACTONE [Concomitant]
     Indication: HYPERTENSION
     Dosage: 50 MG, DAILY
     Route: 048
  6. PREDNISONE [Concomitant]
     Indication: ARTHRITIS
     Dosage: 5 MG, DAILY
     Route: 048

REACTIONS (3)
  - DRUG INEFFECTIVE [None]
  - HEADACHE [None]
  - INAPPROPRIATE SCHEDULE OF DRUG ADMINISTRATION [None]
